FAERS Safety Report 6294762-9 (Version None)
Quarter: 2009Q3

REPORT INFORMATION
  Report Type: 
  Country: None (occurrence: None)
  Receive Date: 20090803
  Receipt Date: 20090722
  Transmission Date: 20100115
  Serious: Yes (Other)
  Sender: FDA-Public Use
  Company Number: JP-PFIZER INC-2009246423

PATIENT
  Age: 82 Year

DRUGS (7)
  1. ZITHROMAX [Suspect]
     Indication: INFECTION
     Dosage: 500 MG, UNK
     Route: 048
     Dates: start: 20090718, end: 20090720
  2. URSO 250 [Concomitant]
     Route: 048
  3. VITAMIN B-12 [Concomitant]
     Route: 048
  4. ALINAMIN F [Concomitant]
     Route: 048
  5. TOCOPHERYL ACETATE [Concomitant]
     Route: 048
  6. CINAL [Concomitant]
     Route: 048
  7. EPL CAP. [Concomitant]
     Route: 048

REACTIONS (3)
  - C-REACTIVE PROTEIN INCREASED [None]
  - PURPURA [None]
  - WHITE BLOOD CELL COUNT INCREASED [None]
